FAERS Safety Report 4618348-4 (Version None)
Quarter: 2005Q1

REPORT INFORMATION
  Report Type: 
  Country: None (occurrence: None)
  Receive Date: 20050323
  Receipt Date: 20050316
  Transmission Date: 20050727
  Serious: No
  Sender: FDA-Public Use
  Company Number: 2005AP01732

PATIENT
  Age: 30 Year
  Sex: Female

DRUGS (2)
  1. SEROQUEL [Suspect]
     Dosage: 75 MG DAILY PO
     Route: 048
     Dates: start: 20050307, end: 20050308
  2. SOLANAX [Concomitant]

REACTIONS (2)
  - CLUSTER HEADACHE [None]
  - DYSSTASIA [None]
